FAERS Safety Report 17167168 (Version 1)
Quarter: 2019Q4

REPORT INFORMATION
  Report Type: Spontaneous
  Country: ES (occurrence: ES)
  Receive Date: 20191218
  Receipt Date: 20191218
  Transmission Date: 20200122
  Serious: Yes (Other)
  Sender: FDA-Public Use
  Company Number: ES-TEVA-2019-ES-1152463

PATIENT
  Age: 69 Year
  Sex: Male

DRUGS (4)
  1. PARACETAMOL (12A) [Concomitant]
     Active Substance: ACETAMINOPHEN
     Indication: PAIN
     Dosage: 1 DF
     Route: 065
     Dates: start: 20190216, end: 20190226
  2. PREDNISONA CINFA 30 MG COMPRIMIDOS EFG, 30 COMPRIMIDOS [Concomitant]
     Active Substance: PREDNISONE
     Indication: PERITONSILLAR ABSCESS
     Dosage: 30 MG
     Route: 048
     Dates: start: 20190216, end: 20190226
  3. AMOXICILINA + ACIDO CLAVULANICO [Suspect]
     Active Substance: AMOXICILLIN\CLAVULANIC ACID
     Indication: CATARRH
     Dosage: 1 DF
     Route: 048
     Dates: start: 20190312
  4. AMOXICILINA + ACIDO CLAVULANICO [Concomitant]
     Active Substance: AMOXICILLIN\CLAVULANIC ACID
     Indication: PERITONSILLAR ABSCESS
     Route: 048
     Dates: start: 20190216, end: 20190226

REACTIONS (1)
  - Hepatitis acute [Recovered/Resolved]

NARRATIVE: CASE EVENT DATE: 20190521
